FAERS Safety Report 7619725-X (Version None)
Quarter: 2011Q3

REPORT INFORMATION
  Report Type: 
  Country: None (occurrence: None)
  Receive Date: 20110719
  Receipt Date: 20110711
  Transmission Date: 20111222
  Serious: Yes (Other)
  Sender: FDA-Public Use
  Company Number: US-CELGENEUS-163-21880-11071464

PATIENT
  Sex: Male

DRUGS (14)
  1. NEURONTIN [Concomitant]
     Route: 065
  2. SEROQUEL [Concomitant]
     Route: 065
  3. LOMOTIL [Concomitant]
     Route: 065
  4. OXYCODONE HCL [Concomitant]
     Route: 065
  5. REVLIMID [Suspect]
     Dosage: 15 MILLIGRAM
     Route: 048
     Dates: start: 20110201
  6. REVLIMID [Suspect]
     Dosage: 5 MILLIGRAM
     Route: 048
  7. LAMICTAL [Concomitant]
     Route: 065
  8. CYMBALTA [Concomitant]
     Route: 065
  9. OXYCONTIN [Concomitant]
     Route: 065
  10. REVLIMID [Suspect]
     Indication: MULTIPLE MYELOMA
     Dosage: 15 MILLIGRAM
     Route: 048
     Dates: start: 20100202
  11. REVLIMID [Suspect]
     Dosage: 10 MILLIGRAM
     Route: 048
     Dates: start: 20100501
  12. MARINOL [Concomitant]
     Route: 065
  13. PROTONIX [Concomitant]
     Route: 065
  14. VALTREX [Concomitant]
     Route: 065

REACTIONS (2)
  - SHOULDER OPERATION [None]
  - THROMBOPHLEBITIS SUPERFICIAL [None]
